FAERS Safety Report 9018339 (Version 1)
Quarter: 2013Q1

REPORT INFORMATION
  Report Type: Spontaneous
  Country: US (occurrence: None)
  Receive Date: 20130111
  Receipt Date: 20130111
  Transmission Date: 20140127
  Serious: Yes (Life-Threatening, Hospitalization, Disabling, Congenital Anomaly, Other)
  Sender: FDA-Public Use
  Company Number: None

PATIENT
  Age: 56 Year
  Sex: Male
  Weight: 58.97 kg

DRUGS (3)
  1. INVEGA [Suspect]
     Dosage: DOSE OF WHAT? VECHICLE? CRUDE? X1 IM
     Route: 030
     Dates: start: 20110817, end: 20111221
  2. INVEGA [Suspect]
  3. SEROQUEL [Concomitant]

REACTIONS (2)
  - Fall [None]
  - Musculoskeletal stiffness [None]
